FAERS Safety Report 14225399 (Version 1)
Quarter: 2017Q4

REPORT INFORMATION
  Report Type: Spontaneous
  Country: US (occurrence: US)
  Receive Date: 20171127
  Receipt Date: 20171127
  Transmission Date: 20180321
  Serious: No
  Sender: FDA-Public Use
  Company Number: US-PFIZER INC-2017507292

PATIENT
  Age: 15 Year
  Sex: Male

DRUGS (2)
  1. ADVIL [Suspect]
     Active Substance: IBUPROFEN
     Indication: HEADACHE
     Dosage: 200 MG CAPSULES
  2. ADVIL [Suspect]
     Active Substance: IBUPROFEN
     Indication: PYREXIA

REACTIONS (3)
  - Pyrexia [Unknown]
  - Product physical issue [Unknown]
  - Poor quality drug administered [Unknown]
